FAERS Safety Report 10404961 (Version 1)
Quarter: 2014Q3

REPORT INFORMATION
  Report Type: Spontaneous
  Country: US (occurrence: US)
  Receive Date: 20140825
  Receipt Date: 20140825
  Transmission Date: 20150326
  Serious: No
  Sender: FDA-Public Use
  Company Number: US-BIOGENIDEC-2014BI084610

PATIENT
  Age: 46 Year
  Sex: Female

DRUGS (3)
  1. ETODOLAC. [Concomitant]
     Active Substance: ETODOLAC
     Indication: SYSTEMIC LUPUS ERYTHEMATOSUS
  2. ETODOLAC. [Concomitant]
     Active Substance: ETODOLAC
     Indication: PROPHYLAXIS
  3. AVONEX [Suspect]
     Active Substance: INTERFERON BETA-1A
     Indication: MULTIPLE SCLEROSIS
     Route: 030
     Dates: start: 20140726

REACTIONS (6)
  - Injection site warmth [Not Recovered/Not Resolved]
  - Influenza like illness [Recovered/Resolved]
  - Anxiety [Recovered/Resolved]
  - Dyspnoea [Recovered/Resolved]
  - Injection site bruising [Not Recovered/Not Resolved]
  - Injection site erythema [Not Recovered/Not Resolved]

NARRATIVE: CASE EVENT DATE: 20140810
